FAERS Safety Report 21520109 (Version 1)
Quarter: 2022Q4

REPORT INFORMATION
  Report Type: Spontaneous
  Country: US (occurrence: US)
  Receive Date: 20221028
  Receipt Date: 20221028
  Transmission Date: 20230113
  Serious: Yes (Death, Hospitalization)
  Sender: FDA-Public Use
  Company Number: US-MYLANLABS-2022M1117965

PATIENT
  Age: 72 Year
  Sex: Male

DRUGS (2)
  1. NOREPINEPHRINE [Suspect]
     Active Substance: NOREPINEPHRINE
     Indication: Obstructive shock
     Dosage: UNKUNK, LOW DOSE; EXACT DOSE UNKNOWN.
     Route: 065
  2. NOREPINEPHRINE [Suspect]
     Active Substance: NOREPINEPHRINE
     Dosage: 100 MICROGRAM, QH
     Route: 065

REACTIONS (2)
  - Drug ineffective [Fatal]
  - Cardiac arrest [Fatal]
